FAERS Safety Report 6244968-X (Version None)
Quarter: 2009Q2

REPORT INFORMATION
  Report Type: 
  Country: None (occurrence: None)
  Receive Date: 20090623
  Receipt Date: 20090623
  Transmission Date: 20091009
  Serious: No
  Sender: FDA-Public Use
  Company Number: None

PATIENT
  Sex: Male
  Weight: 62.5964 kg

DRUGS (2)
  1. SEROQUEL [Suspect]
     Indication: MANIA
  2. SEROQUEL [Suspect]
     Indication: TRISOMY 21

REACTIONS (2)
  - AGITATION [None]
  - DRUG INTOLERANCE [None]
